FAERS Safety Report 25257385 (Version 4)
Quarter: 2025Q3

REPORT INFORMATION
  Report Type: Spontaneous
  Country: CH (occurrence: CH)
  Receive Date: 20250430
  Receipt Date: 20250803
  Transmission Date: 20251021
  Serious: Yes (Death, Life-Threatening, Hospitalization)
  Sender: ALEXION PHARMACEUTICALS
  Company Number: None

PATIENT
  Age: 79 Year
  Sex: Male
  Weight: 74.4 kg

DRUGS (13)
  1. ULTOMIRIS [Suspect]
     Active Substance: RAVULIZUMAB-CWVZ
     Indication: Myasthenia gravis
     Dates: start: 20250317, end: 20250331
  2. ULTOMIRIS [Suspect]
     Active Substance: RAVULIZUMAB-CWVZ
     Dates: start: 20250331, end: 20250331
  3. CELLCEPT [Suspect]
     Active Substance: MYCOPHENOLATE MOFETIL
  4. PREDNISOLONE [Suspect]
     Active Substance: PREDNISOLONE
  5. Lansoprazol mepha [Concomitant]
  6. METFORMIN [Concomitant]
     Active Substance: METFORMIN HYDROCHLORIDE
  7. METFORMIN [Concomitant]
     Active Substance: METFORMIN HYDROCHLORIDE
  8. DAPAGLIFLOZIN [Concomitant]
     Active Substance: DAPAGLIFLOZIN
  9. ASPIRIN [Concomitant]
     Active Substance: ASPIRIN
  10. BISOPROLOL [Concomitant]
     Active Substance: BISOPROLOL
  11. AMLODIPINE MESYLATE [Concomitant]
     Active Substance: AMLODIPINE MESYLATE
  12. ENTRESTO [Concomitant]
     Active Substance: SACUBITRIL\VALSARTAN
  13. Atorvastatin ezetimib zentiva [Concomitant]

REACTIONS (2)
  - Ischaemic stroke [Fatal]
  - Herpes zoster [Fatal]

NARRATIVE: CASE EVENT DATE: 20250404
